FAERS Safety Report 23044889 (Version 3)
Quarter: 2024Q2

REPORT INFORMATION
  Report Type: Spontaneous
  Country: US (occurrence: US)
  Receive Date: 20231009
  Receipt Date: 20240614
  Transmission Date: 20240716
  Serious: Yes (Hospitalization, Other)
  Sender: FDA-Public Use
  Company Number: US-PFIZER INC-PV202300165528

PATIENT
  Age: 39 Year
  Sex: Female

DRUGS (8)
  1. IBRANCE [Suspect]
     Active Substance: PALBOCICLIB
     Indication: Breast cancer female
     Dosage: 125 MG, CYCLIC (1 TABLET BY MOUTH ONCE DAILY ON DAYS 1-21, EVERY 28 DAYS)
     Route: 048
     Dates: start: 20230801, end: 202402
  2. FEMARA [Concomitant]
     Active Substance: LETROZOLE
     Dosage: UNK
  3. LEVOTHYROXINE [Concomitant]
     Active Substance: LEVOTHYROXINE\LEVOTHYROXINE SODIUM
     Dosage: UNK
  4. XGEVA [Concomitant]
     Active Substance: DENOSUMAB
     Dosage: UNK
  5. PIQRAY [Concomitant]
     Active Substance: ALPELISIB
     Dosage: 150MG TAB (300MG/D)
  6. APAP [Concomitant]
     Active Substance: ACETAMINOPHEN
     Dosage: 5-325MG
  7. OXYCOD [OXYTOCIN] [Concomitant]
     Dosage: 5-325MG
  8. GOSERELIN [Concomitant]
     Active Substance: GOSERELIN
     Dosage: UNK

REACTIONS (6)
  - Pneumonia [Recovered/Resolved]
  - Nervousness [Not Recovered/Not Resolved]
  - Anxiety [Not Recovered/Not Resolved]
  - Pain [Unknown]
  - Neoplasm progression [Unknown]
  - Fatigue [Not Recovered/Not Resolved]

NARRATIVE: CASE EVENT DATE: 20240207
